FAERS Safety Report 13893399 (Version 1)
Quarter: 2017Q3

REPORT INFORMATION
  Report Type: Spontaneous
  Country: US (occurrence: US)
  Receive Date: 20170822
  Receipt Date: 20170822
  Transmission Date: 20171127
  Serious: No
  Sender: FDA-Public Use
  Company Number: US-ENDO PHARMACEUTICALS INC-2017-001978

PATIENT
  Sex: Male
  Weight: 113.38 kg

DRUGS (10)
  1. GABAPENTIN. [Concomitant]
     Active Substance: GABAPENTIN
     Indication: NEURALGIA
     Dosage: 800 MG, TID
     Route: 048
     Dates: start: 2012
  2. TESTOPEL [Suspect]
     Active Substance: TESTOSTERONE
     Indication: HYPOGONADISM
     Dosage: 10 PELLETS EVERY TWO MONTHS
     Route: 065
     Dates: start: 2015
  3. BACLOFEN. [Concomitant]
     Active Substance: BACLOFEN
     Indication: MUSCLE SPASTICITY
  4. TESTOPEL [Suspect]
     Active Substance: TESTOSTERONE
     Dosage: UNK UNKNOWN, EVERY THREE MONTHS
     Route: 065
  5. BACLOFEN. [Concomitant]
     Active Substance: BACLOFEN
     Indication: MUSCLE SPASMS
     Dosage: 20 MG, QID
     Route: 048
     Dates: start: 2012
  6. OXYCODONE HYDROCHLORIDE. [Concomitant]
     Active Substance: OXYCODONE HYDROCHLORIDE
     Indication: NEURALGIA
     Dosage: 40 MG, BID
     Route: 048
  7. TESTOPEL [Suspect]
     Active Substance: TESTOSTERONE
     Dosage: TWELVE PELLETS, UNKNOWN, UNK
     Route: 065
  8. OXYCODONE WITH APAP [Concomitant]
     Active Substance: ACETAMINOPHEN\OXYCODONE HYDROCHLORIDE
     Indication: NEURALGIA
     Dosage: 10 MG, TID
     Route: 048
     Dates: start: 2012
  9. HYDROCORTISONE TABLETS [Concomitant]
     Active Substance: HYDROCORTISONE
     Indication: PROPHYLAXIS
     Dosage: 10MG IN THE MORNING, 10MG AT NOON AND 5 MG IN THE EVENING
     Route: 048
     Dates: start: 2014
  10. FLUDROCORTISONE [Concomitant]
     Active Substance: FLUDROCORTISONE
     Indication: STEROID THERAPY
     Dosage: 0.1MG TAB, 1/2 TAB IN THE MORNING
     Route: 048
     Dates: start: 2014

REACTIONS (7)
  - Inappropriate schedule of drug administration [Unknown]
  - Personality change [Unknown]
  - Blood testosterone increased [Unknown]
  - Depression [Unknown]
  - Libido increased [Unknown]
  - Prescribed overdose [Unknown]
  - Blood testosterone decreased [Unknown]
